FAERS Safety Report 26043161 (Version 1)
Quarter: 2025Q4

REPORT INFORMATION
  Report Type: Spontaneous
  Country: GB (occurrence: GB)
  Receive Date: 20251113
  Receipt Date: 20251113
  Transmission Date: 20260118
  Serious: Yes (Other)
  Sender: PFIZER
  Company Number: None

PATIENT
  Age: 6 Year
  Sex: Female

DRUGS (2)
  1. NGENLA [Suspect]
     Active Substance: SOMATROGON-GHLA
     Indication: Growth hormone deficiency
     Dosage: 19MG ONCE WEEKLY ON A TUESDAY - HAD 3 DOSES IN TOTAL
     Dates: start: 20250812, end: 20250905
  2. DESMOPRESSIN [Concomitant]
     Active Substance: DESMOPRESSIN
     Indication: Diabetes insipidus
     Dosage: UNK

REACTIONS (5)
  - Diabetes insipidus [Not Recovered/Not Resolved]
  - Condition aggravated [Not Recovered/Not Resolved]
  - Myoclonus [Recovered/Resolved]
  - Polyuria [Unknown]
  - Thirst [Unknown]

NARRATIVE: CASE EVENT DATE: 20250813
